FAERS Safety Report 8433315-0 (Version None)
Quarter: 2012Q2

REPORT INFORMATION
  Report Type: 
  Country: None (occurrence: None)
  Receive Date: 20120613
  Receipt Date: 20120604
  Transmission Date: 20120825
  Serious: Yes (Other)
  Sender: FDA-Public Use
  Company Number: DE-JNJFOC-20120519883

PATIENT
  Sex: Male

DRUGS (10)
  1. DIPYRONE TAB [Concomitant]
  2. ACETYLSALICYLIC ACID SRT [Concomitant]
  3. XARELTO [Suspect]
     Indication: CEREBROVASCULAR ACCIDENT PROPHYLAXIS
     Route: 048
  4. AMIODARONE HCL [Concomitant]
  5. XARELTO [Suspect]
     Indication: ATRIAL FIBRILLATION
     Route: 048
  6. METOPROLOL TARTRATE [Concomitant]
  7. AMIODARONE HCL [Concomitant]
  8. ATORVASTATIN CALCIUM [Concomitant]
  9. LOSARTAN POTASSIUM [Concomitant]
  10. HEPARIN [Concomitant]

REACTIONS (1)
  - RENAL INFARCT [None]
